FAERS Safety Report 5208400-7 (Version None)
Quarter: 2006Q4

REPORT INFORMATION
  Report Type: 
  Country: None (occurrence: None)
  Receive Date: 20061026
  Receipt Date: 20060807
  Transmission Date: 20070319
  Serious: No
  Sender: FDA-Public Use
  Company Number: 2006098123

PATIENT
  Age: 67 Year
  Sex: Male
  Weight: 72.5755 kg

DRUGS (5)
  1. LYRICA [Suspect]
     Indication: PARAESTHESIA
     Dosage: 150 MG (75 MG,2 IN 1 D)
     Dates: start: 20060701
  2. CYCLOSPORINE [Concomitant]
  3. VICODIN [Concomitant]
  4. XANAX [Concomitant]
  5. METFORMIN HCL [Concomitant]

REACTIONS (4)
  - DRY MOUTH [None]
  - NASAL CONGESTION [None]
  - POSTNASAL DRIP [None]
  - SNEEZING [None]
